FAERS Safety Report 5639827-7 (Version None)
Quarter: 2008Q1

REPORT INFORMATION
  Report Type: 
  Country: None (occurrence: None)
  Receive Date: 20080227
  Receipt Date: 20080130
  Transmission Date: 20080703
  Serious: No
  Sender: FDA-Public Use
  Company Number: US-BAYER-200813121NA

PATIENT
  Age: 26 Year
  Sex: Female
  Weight: 54 kg

DRUGS (1)
  1. YAZ [Suspect]
     Indication: CONTRACEPTION
     Route: 048
     Dates: start: 20080122

REACTIONS (6)
  - DRY MOUTH [None]
  - DYSPNOEA [None]
  - FOOD POISONING [None]
  - NAUSEA [None]
  - OLIGOMENORRHOEA [None]
  - PYREXIA [None]
